FAERS Safety Report 6393329-1 (Version None)
Quarter: 2009Q4

REPORT INFORMATION
  Report Type: 
  Country: None (occurrence: None)
  Receive Date: 20091008
  Receipt Date: 20090929
  Transmission Date: 20100525
  Serious: Yes (Other)
  Sender: FDA-Public Use
  Company Number: CA-JNJFOC-20090907528

PATIENT
  Sex: Male

DRUGS (2)
  1. PREZISTA [Suspect]
     Route: 048
  2. PREZISTA [Suspect]
     Indication: HIV INFECTION
     Route: 048

REACTIONS (5)
  - CYTOMEGALOVIRUS INFECTION [None]
  - DRUG DISPENSING ERROR [None]
  - PRODUCT QUALITY ISSUE [None]
  - UNDERDOSE [None]
  - VISUAL ACUITY REDUCED [None]
